FAERS Safety Report 8448581-5 (Version None)
Quarter: 2012Q2

REPORT INFORMATION
  Report Type: 
  Country: None (occurrence: None)
  Receive Date: 20120619
  Receipt Date: 20120612
  Transmission Date: 20120825
  Serious: Yes (Hospitalization)
  Sender: FDA-Public Use
  Company Number: IT-ROCHE-1077939

PATIENT
  Sex: Male

DRUGS (1)
  1. ROCEPHIN [Suspect]
     Indication: ACUTE TONSILLITIS
     Route: 030
     Dates: start: 20120526, end: 20120531

REACTIONS (2)
  - PANCREATIC ENZYME ABNORMALITY [None]
  - HEPATITIS CHOLESTATIC [None]
